FAERS Safety Report 23271167 (Version 1)
Quarter: 2023Q4

REPORT INFORMATION
  Report Type: Spontaneous
  Country: US (occurrence: US)
  Receive Date: 20231207
  Receipt Date: 20231207
  Transmission Date: 20240109
  Serious: No
  Sender: FDA-Public Use
  Company Number: US-PHARMAESSENTIA CORPORATION-US-2023-PEC-002071

PATIENT
  Sex: Female

DRUGS (2)
  1. BESREMI [Suspect]
     Active Substance: ROPEGINTERFERON ALFA-2B-NJFT
     Indication: Polycythaemia vera
     Dosage: 50 MCG, Q2W
     Route: 058
     Dates: start: 20230227
  2. BESREMI [Suspect]
     Active Substance: ROPEGINTERFERON ALFA-2B-NJFT
     Dosage: 500 MCG, Q2W
     Route: 058

REACTIONS (10)
  - White blood cell count increased [Unknown]
  - Gangrene [Recovered/Resolved]
  - Formication [Unknown]
  - Intentional dose omission [Unknown]
  - Contusion [Unknown]
  - Stress [Unknown]
  - Abnormal loss of weight [Unknown]
  - Fatigue [Unknown]
  - Pain in extremity [Unknown]
  - Pruritus [Unknown]
